FAERS Safety Report 20795297 (Version 3)
Quarter: 2023Q1

REPORT INFORMATION
  Report Type: Spontaneous
  Country: US (occurrence: US)
  Receive Date: 20220506
  Receipt Date: 20230207
  Transmission Date: 20230418
  Serious: No
  Sender: FDA-Public Use
  Company Number: US-PFIZER INC-2021313747

PATIENT
  Age: 77 Year
  Sex: Male
  Weight: 79.38 kg

DRUGS (1)
  1. VYNDAMAX [Suspect]
     Active Substance: TAFAMIDIS
     Indication: Neuropathy peripheral
     Dosage: 61 MG, 1X/DAY
     Dates: start: 202008

REACTIONS (3)
  - Off label use [Unknown]
  - Oedema [Recovered/Resolved]
  - N-terminal prohormone brain natriuretic peptide increased [Unknown]

NARRATIVE: CASE EVENT DATE: 20220201
